FAERS Safety Report 9914324 (Version 2)
Quarter: 2014Q1

REPORT INFORMATION
  Report Type: Spontaneous
  Country: US (occurrence: US)
  Receive Date: 20140220
  Receipt Date: 20140220
  Transmission Date: 20141002
  Serious: Yes (Other)
  Sender: FDA-Public Use
  Company Number: US-GE HEALTHCARE MEDICAL DIAGNOSTICS-OSCN-PR-1006S-0138

PATIENT
  Age: 53 Year
  Sex: Female

DRUGS (3)
  1. OMNISCAN [Suspect]
     Indication: MASS
     Dates: start: 20060530, end: 20060530
  2. MAGNEVIST [Suspect]
     Indication: RENAL MASS
     Route: 042
     Dates: start: 20040806, end: 20040806
  3. MAGNEVIST [Suspect]
     Route: 042
     Dates: start: 20040812, end: 20040812

REACTIONS (1)
  - Nephrogenic systemic fibrosis [Not Recovered/Not Resolved]
